FAERS Safety Report 6676273-1 (Version None)
Quarter: 2010Q2

REPORT INFORMATION
  Report Type: 
  Country: None (occurrence: None)
  Receive Date: 20100408
  Receipt Date: 20100402
  Transmission Date: 20101027
  Serious: Yes (Disabling, Other)
  Sender: FDA-Public Use
  Company Number: 2009AL004334

PATIENT
  Age: 55 Year
  Sex: Female
  Weight: 133 kg

DRUGS (5)
  1. METOCLOPRAMIDE [Suspect]
     Indication: GASTROOESOPHAGEAL REFLUX DISEASE
     Dosage: 10 MG; HS; PO
     Route: 048
     Dates: start: 20030328, end: 20061029
  2. METOCLOPRAMIDE [Suspect]
     Indication: GASTROOESOPHAGEAL REFLUX DISEASE
     Dosage: 10 MG; HS; PO
     Route: 048
     Dates: start: 20030328, end: 20061029
  3. PROTONIX [Concomitant]
  4. ZANTAC [Concomitant]
  5. GAVISCON [Concomitant]

REACTIONS (31)
  - ABDOMINAL DISTENSION [None]
  - ACTIVITIES OF DAILY LIVING IMPAIRED [None]
  - AKATHISIA [None]
  - ANHEDONIA [None]
  - ANXIETY [None]
  - CONSTIPATION [None]
  - DEFORMITY [None]
  - DEPRESSION [None]
  - DIZZINESS [None]
  - DRUG DEPENDENCE [None]
  - DYSKINESIA [None]
  - DYSTONIA [None]
  - ECONOMIC PROBLEM [None]
  - EMOTIONAL DISTRESS [None]
  - EXTRAPYRAMIDAL DISORDER [None]
  - FATIGUE [None]
  - FEELING COLD [None]
  - GRIMACING [None]
  - INFLUENZA [None]
  - MENTAL DISORDER [None]
  - NAUSEA [None]
  - NERVOUS SYSTEM DISORDER [None]
  - PAIN [None]
  - PALLOR [None]
  - SUICIDAL IDEATION [None]
  - TARDIVE DYSKINESIA [None]
  - TONGUE DISORDER [None]
  - TREMOR [None]
  - UNEVALUABLE EVENT [None]
  - VISUAL IMPAIRMENT [None]
  - VOMITING [None]
